FAERS Safety Report 16252576 (Version 1)
Quarter: 2019Q2

REPORT INFORMATION
  Report Type: Spontaneous
  Country: SE (occurrence: SE)
  Receive Date: 20190429
  Receipt Date: 20190429
  Transmission Date: 20190711
  Serious: Yes (Disabling, Other)
  Sender: FDA-Public Use
  Company Number: SE-MYLANLABS-2019M1040062

PATIENT
  Age: 54 Year
  Sex: Male

DRUGS (2)
  1. LOPERAMID MYLAN 2 MG KAPSEL, H?RD [Suspect]
     Active Substance: LOPERAMIDE HYDROCHLORIDE
     Indication: ENTEROSTOMY
     Dosage: UNK, PRN(ORDINERAD LOPERAMID MYLAN/DIMOR 8 DAG/VB, MUNTLIGT 12-14 DAGLIGEN/VB)
     Route: 048
  2. DIMOR [Suspect]
     Active Substance: LOPERAMIDE
     Indication: ENTEROSTOMY
     Dosage: UNK UNK, PRN(ORDINERAD LOPERAMID MYLAN/DIMOR 8 DAG/VB, MUNTLIGT 12-14 DAGLIGEN/VB)
     Route: 048

REACTIONS (3)
  - Dry eye [Unknown]
  - Mucosal erosion [Unknown]
  - Atrial fibrillation [Recovered/Resolved]

NARRATIVE: CASE EVENT DATE: 2018
